FAERS Safety Report 23712205 (Version 1)
Quarter: 2024Q2

REPORT INFORMATION
  Report Type: Spontaneous
  Country: US (occurrence: US)
  Receive Date: 20240405
  Receipt Date: 20240405
  Transmission Date: 20240715
  Serious: No
  Sender: FDA-Public Use
  Company Number: US-TEVA-VS-3173333

PATIENT
  Sex: Male

DRUGS (1)
  1. SULFASALAZINE [Suspect]
     Active Substance: SULFASALAZINE
     Indication: Product used for unknown indication
     Route: 065

REACTIONS (1)
  - Exposure to allergen [Unknown]
